FAERS Safety Report 8809593 (Version 1)
Quarter: 2012Q4

REPORT INFORMATION
  Report Type: 
  Country: US (occurrence: US)
  Receive Date: 20120926
  Receipt Date: 20120926
  Transmission Date: 20130627
  Serious: Yes (Death)
  Sender: FDA-Public Use
  Company Number: US-ROCHE-1123537

PATIENT
  Sex: Female

DRUGS (1)
  1. AVASTIN [Suspect]
     Indication: COLON CANCER
     Route: 065

REACTIONS (6)
  - Death [Fatal]
  - Dizziness [Unknown]
  - Nasopharyngitis [Unknown]
  - Tremor [Unknown]
  - Muscular weakness [Unknown]
  - Breast pain [Unknown]
